FAERS Safety Report 7806461-X (Version None)
Quarter: 2011Q4

REPORT INFORMATION
  Report Type: 
  Country: None (occurrence: None)
  Receive Date: 20111007
  Receipt Date: 20111007
  Transmission Date: 20120403
  Serious: Yes (Other)
  Sender: FDA-Public Use
  Company Number: None

PATIENT
  Age: 77 Year
  Sex: Male
  Weight: 96.1626 kg

DRUGS (1)
  1. PLAVIX [Suspect]
     Indication: STENT PLACEMENT
     Dosage: 1-75 MG DAILY
     Dates: start: 20110708, end: 20110825

REACTIONS (12)
  - VISUAL IMPAIRMENT [None]
  - FEAR [None]
  - MENTAL DISORDER [None]
  - SPEECH DISORDER [None]
  - DEPRESSION [None]
  - HEADACHE [None]
  - BALANCE DISORDER [None]
  - CHILLS [None]
  - WOUND HAEMORRHAGE [None]
  - MOTOR DYSFUNCTION [None]
  - HAEMORRHAGE [None]
  - SUICIDAL IDEATION [None]
